FAERS Safety Report 24674894 (Version 1)
Quarter: 2024Q4

REPORT INFORMATION
  Report Type: Spontaneous
  Country: CO (occurrence: CO)
  Receive Date: 20241128
  Receipt Date: 20241128
  Transmission Date: 20250114
  Serious: Yes (Other)
  Sender: SANOFI AVENTIS
  Company Number: CO-SA-2024SA347526

PATIENT
  Age: 50 Year
  Sex: Female
  Weight: 68 kg

DRUGS (5)
  1. APIDRA [Suspect]
     Active Substance: INSULIN GLULISINE
     Indication: Type 2 diabetes mellitus
     Dosage: 8 IU, QD
     Route: 058
     Dates: start: 20240623
  2. INSULIN DEGLUDEC\LIRAGLUTIDE [Concomitant]
     Active Substance: INSULIN DEGLUDEC\LIRAGLUTIDE
     Indication: Type 2 diabetes mellitus
     Dosage: 30 DF, QD
     Route: 058
     Dates: start: 2021
  3. METFORMIN [Concomitant]
     Active Substance: METFORMIN HYDROCHLORIDE
     Indication: Type 2 diabetes mellitus
     Dosage: 2 DF, QD
     Route: 048
     Dates: start: 2021
  4. LEVOTHYROXINE [Concomitant]
     Active Substance: LEVOTHYROXINE
     Dosage: UNK
     Dates: start: 2011
  5. ATORVASTATIN [Concomitant]
     Active Substance: ATORVASTATIN
     Dosage: UNK
     Dates: start: 2011

REACTIONS (10)
  - Deafness bilateral [Not Recovered/Not Resolved]
  - Diabetic eye disease [Not Recovered/Not Resolved]
  - Ocular hyperaemia [Not Recovered/Not Resolved]
  - Foreign body sensation in eyes [Not Recovered/Not Resolved]
  - Ocular discomfort [Not Recovered/Not Resolved]
  - Visual impairment [Not Recovered/Not Resolved]
  - Gastritis [Not Recovered/Not Resolved]
  - Abdominal pain upper [Not Recovered/Not Resolved]
  - Nausea [Not Recovered/Not Resolved]
  - Eructation [Not Recovered/Not Resolved]

NARRATIVE: CASE EVENT DATE: 20240601
